FAERS Safety Report 5783937-0 (Version None)
Quarter: 2008Q2

REPORT INFORMATION
  Report Type: 
  Country: None (occurrence: None)
  Receive Date: 20080619
  Receipt Date: 20080619
  Transmission Date: 20081010
  Serious: Yes (Hospitalization)
  Sender: FDA-Public Use
  Company Number: None

PATIENT
  Age: 24 Year
  Sex: Female
  Weight: 60 kg

DRUGS (1)
  1. CETACAINE SPRAY 14% [Suspect]
     Indication: GASTROINTESTINAL TUBE INSERTION
     Dosage: SPRAY PRN PO
     Route: 048
     Dates: start: 20080614, end: 20080614

REACTIONS (2)
  - METHAEMOGLOBINAEMIA [None]
  - OVERDOSE [None]
